FAERS Safety Report 6901049-7 (Version None)
Quarter: 2010Q3

REPORT INFORMATION
  Report Type: 
  Country: None (occurrence: None)
  Receive Date: 20100803
  Receipt Date: 20100723
  Transmission Date: 20110219
  Serious: Yes (Hospitalization, Other)
  Sender: FDA-Public Use
  Company Number: US-SANOFI-AVENTIS-A03200701989

PATIENT
  Age: 62 Year
  Sex: Male
  Weight: 113 kg

DRUGS (23)
  1. PLAVIX [Suspect]
     Indication: CARDIOVASCULAR DISORDER
     Dosage: UNIT DOSE: 75 MG
     Route: 048
     Dates: start: 20010820, end: 20040129
  2. CATAPRES /USA/ [Concomitant]
     Route: 048
  3. DEMADEX [Concomitant]
     Route: 048
  4. ASPIRIN [Concomitant]
     Route: 048
  5. VITAMIN E [Concomitant]
     Dosage: DOSE:400 UNIT(S)
     Route: 048
  6. HUMULIN 70/30 [Concomitant]
  7. ARANESP [Concomitant]
     Dosage: DOSE:100 MICROGRAM(S)/MILLILITRE
     Route: 058
  8. NEURONTIN [Concomitant]
     Route: 048
  9. ANDROGEL [Concomitant]
  10. LIPITOR [Concomitant]
     Route: 048
  11. MULTI-VITAMINS [Concomitant]
     Route: 048
  12. COREG [Concomitant]
     Route: 048
  13. AVAPRO [Concomitant]
     Route: 048
  14. ALLOPURINOL [Concomitant]
     Route: 048
  15. DOXAZOSIN [Concomitant]
     Route: 048
  16. PROZAC [Concomitant]
     Route: 048
  17. NIFEREX FORTE [Concomitant]
     Route: 048
  18. PHOSLO [Concomitant]
     Route: 048
  19. HUMALOG [Concomitant]
  20. AMLODIPINE [Concomitant]
     Route: 065
  21. ALTACE [Concomitant]
  22. VALSARTAN [Concomitant]
     Route: 065
  23. TOPROL-XL [Concomitant]

REACTIONS (8)
  - ABDOMINAL PAIN [None]
  - ANAEMIA [None]
  - DIABETIC RETINOPATHY [None]
  - DIARRHOEA [None]
  - DUODENAL ULCER HAEMORRHAGE [None]
  - HAEMATEMESIS [None]
  - HAEMATOCHEZIA [None]
  - NAUSEA [None]
